FAERS Safety Report 8474586-4 (Version None)
Quarter: 2012Q2

REPORT INFORMATION
  Report Type: 
  Country: None (occurrence: None)
  Receive Date: 20120628
  Receipt Date: 20120625
  Transmission Date: 20120825
  Serious: Yes (Life-Threatening, Hospitalization, Other)
  Sender: FDA-Public Use
  Company Number: JP-GENZYME-THYM-1003134

PATIENT
  Sex: Female
  Weight: 38 kg

DRUGS (8)
  1. THYMOGLOBULIN [Suspect]
     Indication: BONE MARROW CONDITIONING REGIMEN
     Dosage: 100 MG, QD
     Route: 042
     Dates: start: 20110606, end: 20110607
  2. CYCLOPHOSPHAMIDE [Concomitant]
     Indication: BONE MARROW CONDITIONING REGIMEN
     Dosage: UNK
     Route: 065
     Dates: start: 20110608, end: 20110611
  3. ITRACONAZOLE [Concomitant]
     Indication: OESOPHAGEAL CANDIDIASIS
     Dosage: UNK
     Route: 065
     Dates: start: 20110606, end: 20110714
  4. CYCLOSPORINE [Concomitant]
     Dosage: UNK
     Route: 065
  5. AMPHOTERICIN B [Concomitant]
     Indication: OESOPHAGEAL CANDIDIASIS
     Dosage: UNK
     Route: 065
     Dates: start: 20110606, end: 20110627
  6. CYCLOSPORINE [Concomitant]
     Indication: PROPHYLAXIS AGAINST GRAFT VERSUS HOST DISEASE
     Dosage: UNK
     Route: 065
     Dates: start: 20110612, end: 20110715
  7. FLUDARA [Suspect]
     Indication: BONE MARROW CONDITIONING REGIMEN
     Dosage: 25 MG/M2, QD, FIVE TIMES
     Route: 065
     Dates: start: 20110608, end: 20110611
  8. CYCLOSPORINE [Concomitant]

REACTIONS (6)
  - PNEUMONIA CYTOMEGALOVIRAL [None]
  - ANAEMIA [None]
  - CYTOMEGALOVIRUS TEST POSITIVE [None]
  - PNEUMOCYSTIS JIROVECI PNEUMONIA [None]
  - PLATELET COUNT DECREASED [None]
  - ACUTE GRAFT VERSUS HOST DISEASE IN SKIN [None]
